FAERS Safety Report 7090336-0 (Version None)
Quarter: 2010Q4

REPORT INFORMATION
  Report Type: 
  Country: None (occurrence: None)
  Receive Date: 20101109
  Receipt Date: 20101029
  Transmission Date: 20110411
  Serious: No
  Sender: FDA-Public Use
  Company Number: US-B.I. PHARMACEUTICALS,INC./RIDGEFIELD-2010-BP-12184BP

PATIENT
  Sex: Male

DRUGS (14)
  1. COMBIVENT [Suspect]
     Indication: CHRONIC OBSTRUCTIVE PULMONARY DISEASE
     Dosage: 8 PUF
     Route: 055
     Dates: start: 20100905
  2. GLUCOPHAGE [Concomitant]
     Indication: DIABETES MELLITUS
     Dosage: 2000 MG
     Route: 048
  3. AMARYL [Concomitant]
     Indication: DIABETES MELLITUS
     Dosage: 2 MG
     Route: 048
  4. JANUVIA [Concomitant]
     Indication: DIABETES MELLITUS
     Dosage: 100 MG
     Route: 048
  5. CARDIZEM CD [Concomitant]
     Indication: CORONARY ARTERY DISEASE
     Dosage: 240 MG
     Route: 048
  6. PHENYTEK [Concomitant]
     Indication: CONVULSION
     Dosage: 400 MG
     Route: 048
  7. VYTORIN [Concomitant]
     Indication: BLOOD CHOLESTEROL INCREASED
     Route: 048
  8. LOPRESSOR [Concomitant]
     Indication: HYPERTENSION
     Dosage: 150 MG
     Route: 048
  9. MAXZIDE [Concomitant]
     Indication: FLUID RETENTION
     Dosage: 12.5 MG
     Route: 048
  10. PREVACID [Concomitant]
     Indication: ULCER
     Dosage: 30 MG
     Route: 048
  11. LEXAPRO [Concomitant]
     Indication: DEPRESSION
     Dosage: 20 MG
     Route: 048
  12. FLOMAX [Concomitant]
     Indication: PROSTATIC DISORDER
     Dosage: 0.4 MG
     Route: 048
  13. ASPIRIN [Concomitant]
     Indication: PROPHYLAXIS
     Dosage: 81 MG
     Route: 048
  14. NITROSTAT [Concomitant]
     Indication: PROPHYLAXIS
     Route: 060

REACTIONS (2)
  - DRY MOUTH [None]
  - PALATAL DISORDER [None]
